FAERS Safety Report 4369979-0 (Version None)
Quarter: 2004Q2

REPORT INFORMATION
  Report Type: 
  Country: None (occurrence: None)
  Receive Date: 20040527
  Receipt Date: 20040514
  Transmission Date: 20050107
  Serious: Yes (Hospitalization)
  Sender: FDA-Public Use
  Company Number: 2004032946

PATIENT
  Age: 60 Year
  Sex: Male

DRUGS (4)
  1. VIAGRA [Suspect]
     Dosage: 50 MG (50 MG, AS NEEDED), ORAL
     Route: 048
  2. VOGLIBOSE (VOGLIBOSE) [Concomitant]
     Dosage: ILL-DEFINED DISORDER
  3. ANTIHYPERTENSIVES (ANTIHYPERTENSIVE-S) [Concomitant]
  4. ETHANOL (ETHANOL) [Concomitant]

REACTIONS (5)
  - ALCOHOL USE [None]
  - DIZZINESS [None]
  - LOSS OF CONSCIOUSNESS [None]
  - PALLOR [None]
  - TETANY [None]
